FAERS Safety Report 7419397-3 (Version None)
Quarter: 2011Q2

REPORT INFORMATION
  Report Type: 
  Country: None (occurrence: None)
  Receive Date: 20110416
  Receipt Date: 20110303
  Transmission Date: 20111010
  Serious: Yes (Hospitalization, Other)
  Sender: FDA-Public Use
  Company Number: US-BAYER-201026409NA

PATIENT
  Sex: Female
  Weight: 86 kg

DRUGS (4)
  1. AVELOX [Concomitant]
  2. YASMIN [Suspect]
     Indication: PREMENSTRUAL SYNDROME
     Dosage: UNK
     Route: 048
     Dates: start: 20070809, end: 20080627
  3. YASMIN [Suspect]
     Indication: MOOD SWINGS
  4. SERTRALINE [Concomitant]
     Dosage: UNK

REACTIONS (1)
  - PULMONARY EMBOLISM [None]
